FAERS Safety Report 24782288 (Version 2)
Quarter: 2025Q1

REPORT INFORMATION
  Report Type: Report from Study
  Country: JP (occurrence: JP)
  Receive Date: 20241227
  Receipt Date: 20250116
  Transmission Date: 20250408
  Serious: Yes (Hospitalization, Other)
  Sender: UCB
  Company Number: JP-UCBJ-CD202412767UCBPHAPROD

PATIENT
  Age: 4 Year
  Sex: Female
  Weight: 25 kg

DRUGS (18)
  1. FENFLURAMINE HYDROCHLORIDE [Suspect]
     Active Substance: FENFLURAMINE HYDROCHLORIDE
     Indication: Severe myoclonic epilepsy of infancy
     Dosage: 0.025 MILLIGRAM/KILOGRAM, 2X/DAY (BID)
     Route: 048
     Dates: start: 20231109
  2. FENFLURAMINE HYDROCHLORIDE [Suspect]
     Active Substance: FENFLURAMINE HYDROCHLORIDE
     Dosage: 0.052 MILLIGRAM/KILOGRAM, 2X/DAY (BID)
     Route: 048
     Dates: start: 20231120
  3. FENFLURAMINE HYDROCHLORIDE [Suspect]
     Active Substance: FENFLURAMINE HYDROCHLORIDE
     Dosage: 0.025 MILLIGRAM/KILOGRAM, 2X/DAY (BID)
     Route: 048
     Dates: start: 20231204
  4. FENFLURAMINE HYDROCHLORIDE [Suspect]
     Active Substance: FENFLURAMINE HYDROCHLORIDE
     Dosage: 0.045 MILLIGRAM/KILOGRAM, 2X/DAY (BID)
     Route: 048
     Dates: start: 20240315
  5. FENFLURAMINE HYDROCHLORIDE [Suspect]
     Active Substance: FENFLURAMINE HYDROCHLORIDE
     Dosage: 0.035 MILLIGRAM/KILOGRAM, 2X/DAY (BID)
     Route: 048
     Dates: start: 20240412
  6. POTASSIUM BROMIDE [Concomitant]
     Active Substance: POTASSIUM BROMIDE
     Indication: Severe myoclonic epilepsy of infancy
     Dosage: 0.6 GRAM, ONCE DAILY (QD)
     Route: 048
     Dates: end: 20231105
  7. POTASSIUM BROMIDE [Concomitant]
     Active Substance: POTASSIUM BROMIDE
     Route: 048
     Dates: start: 20231106
  8. VALPROATE SODIUM [Concomitant]
     Active Substance: VALPROATE SODIUM
     Indication: Severe myoclonic epilepsy of infancy
     Dosage: 270 MILLIGRAM, ONCE DAILY (QD)
     Route: 048
  9. MYSTAN [Concomitant]
     Active Substance: CLOBAZAM
     Indication: Severe myoclonic epilepsy of infancy
     Dosage: 5 MILLIGRAM, ONCE DAILY (QD)
     Route: 048
  10. DIACOMIT [Concomitant]
     Active Substance: STIRIPENTOL
     Indication: Severe myoclonic epilepsy of infancy
     Dosage: 500 MILLIGRAM, ONCE DAILY (QD)
     Route: 048
     Dates: end: 20230820
  11. DIACOMIT [Concomitant]
     Active Substance: STIRIPENTOL
     Dosage: 550 MILLIGRAM, ONCE DAILY (QD)
     Route: 048
     Dates: start: 20230821, end: 20230921
  12. DIACOMIT [Concomitant]
     Active Substance: STIRIPENTOL
     Dosage: 600 MILLIGRAM, ONCE DAILY (QD)
     Route: 048
     Dates: start: 20230922, end: 20240314
  13. DIACOMIT [Concomitant]
     Active Substance: STIRIPENTOL
     Dosage: 550 MILLIGRAM, ONCE DAILY (QD)
     Route: 048
     Dates: start: 20240315
  14. LEVETIRACETAM [Concomitant]
     Active Substance: LEVETIRACETAM
     Indication: Severe myoclonic epilepsy of infancy
     Dosage: 360 MILLIGRAM, ONCE DAILY (QD)
     Route: 048
  15. MIDAZOLAM HYDROCHLORIDE [Concomitant]
     Active Substance: MIDAZOLAM HYDROCHLORIDE
     Indication: Severe myoclonic epilepsy of infancy
     Dosage: 5 MILLIGRAM, ONCE DAILY (QD)
     Route: 002
     Dates: end: 20241106
  16. MIDAZOLAM HYDROCHLORIDE [Concomitant]
     Active Substance: MIDAZOLAM HYDROCHLORIDE
     Route: 002
     Dates: start: 20241107
  17. ACETAMINOPHEN [Concomitant]
     Active Substance: ACETAMINOPHEN
     Indication: Severe myoclonic epilepsy of infancy
     Dosage: 200 MILLIGRAM, ONCE DAILY (QD)
     Route: 054
  18. MELATOBEL [Concomitant]
     Indication: Product used for unknown indication
     Dosage: 0.5 MILLIGRAM, ONCE DAILY (QD)
     Route: 048
     Dates: start: 20240501

REACTIONS (6)
  - Epilepsy [Recovered/Resolved]
  - Pyrexia [Recovered/Resolved]
  - Dizziness [Recovered/Resolved]
  - Nasopharyngitis [Not Recovered/Not Resolved]
  - Prescribed underdose [Unknown]
  - Off label use [Unknown]

NARRATIVE: CASE EVENT DATE: 20231120
